FAERS Safety Report 5664534-4 (Version None)
Quarter: 2008Q1

REPORT INFORMATION
  Report Type: 
  Country: None (occurrence: None)
  Receive Date: 20080311
  Receipt Date: 20080311
  Transmission Date: 20080703
  Serious: Yes (Other)
  Sender: FDA-Public Use
  Company Number: None

PATIENT
  Age: 27 Year
  Sex: Male
  Weight: 72.5755 kg

DRUGS (1)
  1. PROPECIA [Suspect]
     Indication: ALOPECIA
     Dosage: 50 MG 1X DAY PO  2.5 YRS
     Route: 048
     Dates: start: 20020406, end: 20040407

REACTIONS (6)
  - BREAST TENDERNESS [None]
  - DEPRESSION [None]
  - GYNAECOMASTIA [None]
  - HYPERPHAGIA [None]
  - NIPPLE DISORDER [None]
  - STRESS [None]
